FAERS Safety Report 12870487 (Version 1)
Quarter: 2016Q4

REPORT INFORMATION
  Report Type: Other
  Country: NL (occurrence: NL)
  Receive Date: 20161021
  Receipt Date: 20161021
  Transmission Date: 20170207
  Serious: Yes (Hospitalization, Congenital Anomaly)
  Sender: FDA-Public Use
  Company Number: NL-AUROBINDO-AUR-APL-2014-02025

PATIENT

DRUGS (3)
  1. ESCITALOPRAM AUROBINDO FILMOMHULDE TABLETTEN 10MG [Suspect]
     Active Substance: ESCITALOPRAM OXALATE
     Indication: DEPRESSION
     Dosage: 10 MG,ONCE A DAY,
     Route: 064
     Dates: end: 20130626
  2. FOLIC ACID. [Concomitant]
     Active Substance: FOLIC ACID
     Indication: PRODUCT USED FOR UNKNOWN INDICATION
     Dosage: UNK UNK,UNK,
     Route: 065
     Dates: start: 201303
  3. SERTRALINE AUROBINDO FILMOMHULDE TABLETTEN 50MG [Suspect]
     Active Substance: SERTRALINE HYDROCHLORIDE
     Indication: DEPRESSION
     Dosage: 50 MG,ONCE A DAY,
     Route: 064
     Dates: start: 20130626

REACTIONS (3)
  - Foetal exposure during pregnancy [Unknown]
  - Coarctation of the aorta [Unknown]
  - Respiratory failure [Unknown]

NARRATIVE: CASE EVENT DATE: 20140209
